FAERS Safety Report 4335793-5 (Version None)
Quarter: 2004Q2

REPORT INFORMATION
  Report Type: 
  Country: None (occurrence: None)
  Receive Date: 20040406
  Receipt Date: 20040324
  Transmission Date: 20050107
  Serious: Yes (Death, Hospitalization)
  Sender: FDA-Public Use
  Company Number: US070409

PATIENT
  Age: 54 Year
  Sex: Male

DRUGS (3)
  1. ENBREL [Suspect]
     Indication: RHEUMATOID ARTHRITIS
     Dosage: 25 MG, 2 IN 1 WEEKS, SC
     Route: 058
     Dates: start: 20030127, end: 20030325
  2. METHOTREXATE [Suspect]
     Dosage: 20 MG, 1 IN 1 WEEKS, PO
     Route: 048
     Dates: start: 20020306, end: 20030325
  3. ROFECOXIB [Concomitant]

REACTIONS (14)
  - ATRIAL FIBRILLATION [None]
  - CARDIAC ARREST [None]
  - CONDITION AGGRAVATED [None]
  - GENERAL PHYSICAL HEALTH DETERIORATION [None]
  - HAEMORRHAGE [None]
  - HYPOXIA [None]
  - MYOCARDIAL INFARCTION [None]
  - MYOPATHY [None]
  - PNEUMONIA [None]
  - PNEUMOTHORAX [None]
  - POST PROCEDURAL COMPLICATION [None]
  - POST PROCEDURAL HAEMORRHAGE [None]
  - PULMONARY EMBOLISM [None]
  - PULMONARY FIBROSIS [None]
